FAERS Safety Report 7659707-5 (Version None)
Quarter: 2011Q3

REPORT INFORMATION
  Report Type: 
  Country: None (occurrence: None)
  Receive Date: 20110805
  Receipt Date: 20110308
  Transmission Date: 20111222
  Serious: No
  Sender: FDA-Public Use
  Company Number: US-ABBOTT-10P-163-0652630-00

PATIENT
  Sex: Male

DRUGS (2)
  1. DEPAKOTE ER [Suspect]
     Indication: MIGRAINE
  2. DEPAKOTE ER [Suspect]
     Indication: POST CONCUSSION SYNDROME
     Dosage: MFR UNKNOWN
     Route: 048

REACTIONS (2)
  - HOSTILITY [None]
  - MIGRAINE [None]
